FAERS Safety Report 9766433 (Version 1)
Quarter: 2013Q4

REPORT INFORMATION
  Report Type: Spontaneous
  Country: US (occurrence: US)
  Receive Date: 20131217
  Receipt Date: 20131217
  Transmission Date: 20140711
  Serious: No
  Sender: FDA-Public Use
  Company Number: US-GLAXOSMITHKLINE-A1027752A

PATIENT
  Sex: Male
  Weight: 95.5 kg

DRUGS (6)
  1. VOTRIENT [Suspect]
     Indication: LUNG NEOPLASM MALIGNANT
     Dosage: 800MG PER DAY
     Route: 048
     Dates: start: 201305
  2. ANTI-DIARRHEAL [Concomitant]
  3. VICKS SINEX [Concomitant]
  4. NABUMETONE [Concomitant]
  5. PERCOCET [Concomitant]
  6. GABAPENTIN [Concomitant]

REACTIONS (2)
  - Fatigue [Unknown]
  - Therapeutic response unexpected [Unknown]
